FAERS Safety Report 4738452-X (Version None)
Quarter: 2005Q3

REPORT INFORMATION
  Report Type: 
  Country: None (occurrence: None)
  Receive Date: 20050728
  Receipt Date: 20050419
  Transmission Date: 20060218
  Serious: No
  Sender: FDA-Public Use
  Company Number: 200513487US

PATIENT
  Sex: Female

DRUGS (2)
  1. KETEK [Suspect]
     Dates: start: 20050405, end: 20050409
  2. APRI [Suspect]

REACTIONS (3)
  - APPETITE DISORDER [None]
  - BREAST TENDERNESS [None]
  - FATIGUE [None]
